FAERS Safety Report 20853488 (Version 5)
Quarter: 2025Q2

REPORT INFORMATION
  Report Type: Spontaneous
  Country: CA (occurrence: CA)
  Receive Date: 20220520
  Receipt Date: 20250415
  Transmission Date: 20250717
  Serious: Yes (Death, Hospitalization, Other)
  Sender: MYLAN
  Company Number: CA-PFIZER INC-2020088761

PATIENT
  Age: 53 Year
  Sex: Female

DRUGS (20)
  1. REVATIO [Suspect]
     Active Substance: SILDENAFIL CITRATE
     Indication: Pulmonary arterial hypertension
     Dosage: 20 MILLIGRAM, TID
     Dates: start: 20160629
  2. ACETAMINOPHEN [Concomitant]
     Active Substance: ACETAMINOPHEN
  3. ATORVASTATIN [Concomitant]
     Active Substance: ATORVASTATIN
  4. EPOPROSTENOL [Concomitant]
     Active Substance: EPOPROSTENOL
  5. Docusate sod [Concomitant]
  6. IRON [Concomitant]
     Active Substance: IRON
  7. GABAPENTIN [Concomitant]
     Active Substance: GABAPENTIN
  8. HYDROMORPHONE [Concomitant]
     Active Substance: HYDROMORPHONE
  9. LANSOPRAZOLE [Concomitant]
     Active Substance: LANSOPRAZOLE
  10. MIDODRINE [Concomitant]
     Active Substance: MIDODRINE
  11. Replavite [Concomitant]
  12. SENOKOT [Concomitant]
     Active Substance: SENNOSIDES
  13. DIGOXIN [Concomitant]
     Active Substance: DIGOXIN
  14. VITAMIN D [Concomitant]
     Active Substance: VITAMIN D NOS
  15. WARFARIN [Concomitant]
     Active Substance: WARFARIN
  16. ZINC [Concomitant]
     Active Substance: ZINC
  17. ATORVASTATIN [Concomitant]
     Active Substance: ATORVASTATIN
  18. EPOPROSTENOL [Concomitant]
     Active Substance: EPOPROSTENOL
  19. LANSOPRAZOLE [Concomitant]
     Active Substance: LANSOPRAZOLE
  20. VITAMIN D [Concomitant]
     Active Substance: VITAMIN D NOS

REACTIONS (3)
  - Death [Fatal]
  - Hospitalisation [Fatal]
  - Lower limb fracture [Fatal]

NARRATIVE: CASE EVENT DATE: 20240101
